FAERS Safety Report 4341666-4 (Version None)
Quarter: 2004Q2

REPORT INFORMATION
  Report Type: 
  Country: None (occurrence: None)
  Receive Date: 20040415
  Receipt Date: 20040325
  Transmission Date: 20050107
  Serious: Yes (Other)
  Sender: FDA-Public Use
  Company Number: US_0403101911

PATIENT
  Sex: Female

DRUGS (4)
  1. EVISTA [Suspect]
     Dates: start: 20030901
  2. FOSAMAX [Concomitant]
  3. ACTONEL (RISENDRONATE SODIUM) [Concomitant]
  4. MIACALCIN [Concomitant]

REACTIONS (3)
  - FRACTURED SACRUM [None]
  - LUMBAR VERTEBRAL FRACTURE [None]
  - THORACIC VERTEBRAL FRACTURE [None]
